FAERS Safety Report 5864305-X (Version None)
Quarter: 2008Q3

REPORT INFORMATION
  Report Type: 
  Country: None (occurrence: None)
  Receive Date: 20080829
  Receipt Date: 20080609
  Transmission Date: 20090109
  Serious: No
  Sender: FDA-Public Use
  Company Number: US-ABBOTT-08P-163-0455936-00

PATIENT
  Sex: Female

DRUGS (7)
  1. SIMCOR [Suspect]
     Indication: BLOOD CHOLESTEROL INCREASED
     Dosage: 500/20MG DAILY
     Route: 048
     Dates: start: 20080527
  2. ANASTROZOLE [Concomitant]
     Indication: DRUG USE FOR UNKNOWN INDICATION
  3. BEGICOR [Concomitant]
     Indication: DRUG USE FOR UNKNOWN INDICATION
  4. NADOLOL [Concomitant]
     Indication: DRUG USE FOR UNKNOWN INDICATION
  5. LEVOTHYROXINE SODIUM [Concomitant]
     Indication: DRUG USE FOR UNKNOWN INDICATION
  6. GULCOPHAGE ER [Concomitant]
     Indication: DIABETES MELLITUS
  7. GLUCOSE [Concomitant]
     Indication: DRUG USE FOR UNKNOWN INDICATION

REACTIONS (3)
  - ACNE [None]
  - ERYTHEMA [None]
  - PRURITUS [None]
